FAERS Safety Report 5242275-5 (Version None)
Quarter: 2007Q1

REPORT INFORMATION
  Report Type: 
  Country: None (occurrence: None)
  Receive Date: 20070221
  Receipt Date: 20070209
  Transmission Date: 20070707
  Serious: Yes (Hospitalization)
  Sender: FDA-Public Use
  Company Number: JP-JNJFOC-20070104506

PATIENT
  Sex: Male
  Weight: 60 kg

DRUGS (8)
  1. BLINDED; INFLIXIMAB, RECOMBINANT [Suspect]
     Route: 042
  2. BLINDED; INFLIXIMAB, RECOMBINANT [Suspect]
     Indication: COLITIS ULCERATIVE
     Route: 042
  3. PLACEBO [Suspect]
     Route: 042
  4. PLACEBO [Suspect]
     Indication: COLITIS ULCERATIVE
     Route: 042
  5. PREDONINE [Suspect]
     Indication: COLITIS ULCERATIVE
     Route: 048
  6. ALTAT [Concomitant]
     Indication: GASTROINTESTINAL DISORDER THERAPY
     Dosage: START DATE BEFORE SEP-05
     Route: 048
  7. BIOFERMIN [Concomitant]
     Indication: COLITIS ULCERATIVE
     Route: 048
  8. RACOL [Concomitant]
     Indication: COLITIS ULCERATIVE
     Route: 051

REACTIONS (3)
  - CARDIAC FAILURE [None]
  - MYOCARDITIS [None]
  - PERICARDITIS [None]
